FAERS Safety Report 16400703 (Version 2)
Quarter: 2019Q2

REPORT INFORMATION
  Report Type: Report from Study
  Country: US (occurrence: US)
  Receive Date: 20190606
  Receipt Date: 20190619
  Transmission Date: 20190711
  Serious: Yes (Death, Hospitalization, Other)
  Sender: FDA-Public Use
  Company Number: US-ACTELION-A-US2019-189033

PATIENT
  Age: 53 Year
  Sex: Male
  Weight: 102.04 kg

DRUGS (3)
  1. VELETRI [Suspect]
     Active Substance: EPOPROSTENOL
     Dosage: 20 NG/KG, PER MIN
     Route: 042
  2. OXYGEN. [Concomitant]
     Active Substance: OXYGEN
     Dosage: 5 TO 6 LITERS
  3. VELETRI [Suspect]
     Active Substance: EPOPROSTENOL
     Indication: PULMONARY HYPERTENSION
     Dosage: 21 NG/KG, PER MIN
     Route: 042

REACTIONS (14)
  - Right ventricular failure [Fatal]
  - Diarrhoea [Unknown]
  - Systemic lupus erythematosus [Fatal]
  - Pneumonia [Unknown]
  - Weight increased [Unknown]
  - Renal failure [Fatal]
  - Nausea [Unknown]
  - Urinary retention [Unknown]
  - Dyspnoea [Not Recovered/Not Resolved]
  - Oxygen saturation decreased [Unknown]
  - Asthenia [Unknown]
  - Raynaud^s phenomenon [Unknown]
  - Vascular insufficiency [Unknown]
  - Blood pressure decreased [Unknown]

NARRATIVE: CASE EVENT DATE: 201905
